FAERS Safety Report 18261574 (Version 1)
Quarter: 2020Q3

REPORT INFORMATION
  Report Type: Spontaneous
  Country: US (occurrence: US)
  Receive Date: 20200911
  Receipt Date: 20200911
  Transmission Date: 20201103
  Serious: Yes (Death)
  Sender: FDA-Public Use
  Company Number: None

PATIENT
  Sex: Male

DRUGS (6)
  1. GLIPIZIDE. [Concomitant]
     Active Substance: GLIPIZIDE
  2. MUPIROCIN. [Concomitant]
     Active Substance: MUPIROCIN
  3. ARANESP [Suspect]
     Active Substance: DARBEPOETIN ALFA
     Indication: PRODUCT USED FOR UNKNOWN INDICATION
     Dosage: ?          OTHER FREQUENCY:QW;?
     Route: 058
     Dates: start: 20200331
  4. DEXILANT [Concomitant]
     Active Substance: DEXLANSOPRAZOLE
  5. MEGESTROL [Concomitant]
     Active Substance: MEGESTROL
  6. CARVEDILOL. [Concomitant]
     Active Substance: CARVEDILOL

REACTIONS (3)
  - Respiratory failure [None]
  - Hypophagia [None]
  - Depression [None]
